FAERS Safety Report 12263020 (Version 1)
Quarter: 2016Q2

REPORT INFORMATION
  Report Type: Spontaneous
  Country: FR (occurrence: FR)
  Receive Date: 20160413
  Receipt Date: 20160413
  Transmission Date: 20160815
  Serious: Yes (Death, Hospitalization, Other)
  Sender: FDA-Public Use
  Company Number: FR-ABBVIE-15K-056-1519795-00

PATIENT
  Age: 58 Year
  Sex: Female

DRUGS (5)
  1. CORTISONE [Suspect]
     Active Substance: CORTISONE\HYDROCORTISONE
     Indication: PRODUCT USED FOR UNKNOWN INDICATION
     Route: 065
  2. HUMIRA [Suspect]
     Active Substance: ADALIMUMAB
     Indication: RHEUMATOID ARTHRITIS
     Route: 058
     Dates: start: 2013, end: 201511
  3. CORTANCYL [Suspect]
     Active Substance: PREDNISONE
     Indication: PRODUCT USED FOR UNKNOWN INDICATION
     Route: 065
  4. IMETH [Suspect]
     Active Substance: METHOTREXATE SODIUM
     Indication: RHEUMATOID ARTHRITIS
     Route: 048
     Dates: start: 2010, end: 201511
  5. IMETH [Suspect]
     Active Substance: METHOTREXATE SODIUM
     Route: 048
     Dates: start: 201512

REACTIONS (21)
  - Dyspnoea [Unknown]
  - Oliguria [Unknown]
  - Pericardial neoplasm [Fatal]
  - Hepatocellular injury [Unknown]
  - Spindle cell sarcoma [Unknown]
  - Tachypnoea [Unknown]
  - Pulmonary artery stenosis [Unknown]
  - Superior vena cava stenosis [Unknown]
  - Aortic valve incompetence [Unknown]
  - Liver tenderness [Unknown]
  - Pericarditis [Recovered/Resolved]
  - Right ventricular failure [Unknown]
  - Varicose ulceration [Unknown]
  - Superior vena cava syndrome [Unknown]
  - Leiomyosarcoma [Unknown]
  - Cardiac discomfort [Unknown]
  - Right ventricular ejection fraction decreased [Unknown]
  - Musculoskeletal pain [Unknown]
  - Tumour necrosis [Unknown]
  - Sarcomatoid mesothelioma [Unknown]
  - Face oedema [Unknown]

NARRATIVE: CASE EVENT DATE: 201511
